FAERS Safety Report 9910792 (Version 1)
Quarter: 2014Q1

REPORT INFORMATION
  Report Type: Spontaneous
  Country: CA (occurrence: CA)
  Receive Date: 20140219
  Receipt Date: 20140219
  Transmission Date: 20141002
  Serious: Yes (Other)
  Sender: FDA-Public Use
  Company Number: CA-ACTAVIS-2014-02604

PATIENT
  Age: 32 Year
  Sex: Female

DRUGS (4)
  1. RISPERIDONE (UNKNOWN) [Suspect]
     Indication: SCHIZOPHRENIA
     Dosage: 2 MG, DAILY
     Route: 065
     Dates: start: 1995
  2. LOXAPINE [Concomitant]
     Indication: SCHIZOPHRENIA
     Dosage: 100 MG, DAILY
     Route: 065
     Dates: start: 1992
  3. FLUOXETINE [Concomitant]
     Indication: SCHIZOPHRENIA
     Dosage: 60 MG, DAILY
     Route: 065
     Dates: start: 1992
  4. FLUOXETINE [Concomitant]
     Dosage: 20 MG, DAILY
     Route: 065
     Dates: start: 1992

REACTIONS (1)
  - Disturbance in attention [Unknown]
